FAERS Safety Report 9393067 (Version 2)
Quarter: 2013Q3

REPORT INFORMATION
  Report Type: Spontaneous
  Country: JP (occurrence: JP)
  Receive Date: 20130710
  Receipt Date: 20130712
  Transmission Date: 20140515
  Serious: Yes (Other)
  Sender: FDA-Public Use
  Company Number: JP-PFIZER INC-2013197443

PATIENT
  Age: 41 Year
  Sex: Male

DRUGS (1)
  1. SOL-MELCORT [Suspect]
     Dosage: UNK
     Route: 042

REACTIONS (2)
  - Cerebral infarction [Unknown]
  - Carotid artery thrombosis [Unknown]
